FAERS Safety Report 10382044 (Version 1)
Quarter: 2014Q3

REPORT INFORMATION
  Report Type: Report from Study
  Country: CN (occurrence: CN)
  Receive Date: 20140813
  Receipt Date: 20140813
  Transmission Date: 20150326
  Serious: Yes (Hospitalization)
  Sender: FDA-Public Use
  Company Number: CN-ASTELLAS-2014US009923

PATIENT
  Sex: Male

DRUGS (1)
  1. ERLOTINIB [Suspect]
     Active Substance: ERLOTINIB
     Indication: NON-SMALL CELL LUNG CANCER
     Route: 048
     Dates: start: 20140125

REACTIONS (1)
  - Limb injury [Recovering/Resolving]
